FAERS Safety Report 4316366-7 (Version None)
Quarter: 2004Q1

REPORT INFORMATION
  Report Type: 
  Country: None (occurrence: None)
  Receive Date: 20040312
  Receipt Date: 20040312
  Transmission Date: 20041129
  Serious: No
  Sender: FDA-Public Use
  Company Number: None

PATIENT
  Sex: Male
  Weight: 131.9967 kg

DRUGS (9)
  1. EPIRUBICIN [Suspect]
     Indication: HEPATIC NEOPLASM MALIGNANT NON-RESECTABLE
     Dosage: 15 MG/M2 WEEKLY INTRAVENOUS
     Route: 042
     Dates: start: 20030916, end: 20040309
  2. THALIDOMIDE [Suspect]
     Indication: HEPATIC NEOPLASM MALIGNANT NON-RESECTABLE
     Dosage: 200 MG DAILY ORAL
     Route: 048
     Dates: start: 20030916, end: 20040309
  3. HYOSCYAMINE SULFATE [Concomitant]
  4. LISINOPRIL [Concomitant]
  5. POTASSIUM CHLORIDE [Concomitant]
  6. LASIX [Concomitant]
  7. PROZAC [Concomitant]
  8. RISPERDAL [Concomitant]
  9. FENTANYL [Concomitant]

REACTIONS (6)
  - INFUSION SITE ERYTHEMA [None]
  - INJECTION SITE EXTRAVASATION [None]
  - INJECTION SITE REACTION [None]
  - INJECTION SITE SWELLING [None]
  - INJECTION SITE ULCER [None]
  - INJECTION SITE VESICLES [None]
